FAERS Safety Report 23910511 (Version 1)
Quarter: 2024Q2

REPORT INFORMATION
  Report Type: Spontaneous
  Country: US (occurrence: US)
  Receive Date: 20240528
  Receipt Date: 20240528
  Transmission Date: 20240715
  Serious: No
  Sender: FDA-Public Use
  Company Number: US-AVADEL CNS PHARMACEUTICALS, LLC-2024AVA00450

PATIENT
  Sex: Female

DRUGS (7)
  1. LUMRYZ [Suspect]
     Active Substance: SODIUM OXYBATE
     Indication: Narcolepsy
     Dosage: 4.5 G, 1 TIME A DAY
     Route: 048
     Dates: start: 202403
  2. LUMRYZ [Suspect]
     Active Substance: SODIUM OXYBATE
     Indication: Cataplexy
  3. LUMRYZ [Suspect]
     Active Substance: SODIUM OXYBATE
     Indication: Narcolepsy
     Dosage: 6 G, DAILY
     Route: 048
     Dates: start: 202403
  4. LUMRYZ [Suspect]
     Active Substance: SODIUM OXYBATE
     Indication: Cataplexy
  5. LUMRYZ [Suspect]
     Active Substance: SODIUM OXYBATE
     Indication: Narcolepsy
     Dosage: 7.5 G, DAILY
     Route: 048
     Dates: start: 202403
  6. LUMRYZ [Suspect]
     Active Substance: SODIUM OXYBATE
     Indication: Cataplexy
  7. WAKIX [Concomitant]
     Active Substance: PITOLISANT HYDROCHLORIDE
     Dosage: UNK

REACTIONS (2)
  - Myalgia [Unknown]
  - Hypoaesthesia [Unknown]

NARRATIVE: CASE EVENT DATE: 20240101
